FAERS Safety Report 23110815 (Version 1)
Quarter: 2023Q4

REPORT INFORMATION
  Report Type: Spontaneous
  Country: US (occurrence: None)
  Receive Date: 20231025
  Receipt Date: 20231025
  Transmission Date: 20240110
  Serious: Yes (Hospitalization)
  Sender: FDA-Public Use
  Company Number: None

PATIENT
  Age: 61 Year
  Sex: Female
  Weight: 63.5 kg

DRUGS (2)
  1. ACALABRUTINIB [Suspect]
     Active Substance: ACALABRUTINIB
     Indication: Follicular lymphoma
     Dosage: FREQUENCY : TWICE A DAY;?
     Route: 048
     Dates: start: 20220623
  2. OBINUTUZUMAB [Suspect]
     Active Substance: OBINUTUZUMAB
     Dosage: OTHER FREQUENCY : OTHER;?
     Route: 042
     Dates: start: 20220818

REACTIONS (8)
  - Back pain [None]
  - Neck pain [None]
  - Gait disturbance [None]
  - Marrow hyperplasia [None]
  - Metastases to bone [None]
  - Diffuse large B-cell lymphoma [None]
  - Constipation [None]
  - Incontinence [None]

NARRATIVE: CASE EVENT DATE: 20221105
